FAERS Safety Report 10723081 (Version 1)
Quarter: 2015Q1

REPORT INFORMATION
  Report Type: Report from Study
  Country: CA (occurrence: None)
  Receive Date: 20150114
  Receipt Date: 20150114
  Transmission Date: 20150721
  Serious: Yes (Hospitalization, Other)
  Sender: FDA-Public Use
  Company Number: 2014FE03378

PATIENT
  Age: 67 Year
  Sex: Male

DRUGS (1)
  1. FIRMAGON [Suspect]
     Active Substance: DEGARELIX ACETATE
     Indication: PROSTATE CANCER
     Dosage: 80 MG, MONTHLY, FORMULATION: INJECTION, SUBCUTANEOUS
     Route: 058
     Dates: start: 20140630

REACTIONS (4)
  - Abasia [None]
  - Metastases to bone [None]
  - Back pain [None]
  - Spinal compression fracture [None]

NARRATIVE: CASE EVENT DATE: 20141121
